FAERS Safety Report 7985880-5 (Version None)
Quarter: 2011Q4

REPORT INFORMATION
  Report Type: 
  Country: None (occurrence: None)
  Receive Date: 20111214
  Receipt Date: 20111128
  Transmission Date: 20120403
  Serious: Yes (Other)
  Sender: FDA-Public Use
  Company Number: 2011SP050512

PATIENT
  Age: 69 Year
  Sex: Female

DRUGS (9)
  1. RIBAVIRIN [Suspect]
     Indication: PRODUCT USED FOR UNKNOWN INDICATION
  2. METFORMIN [Concomitant]
  3. ESTRADERM [Concomitant]
  4. CALCIUM WITH VITAMIN D [Concomitant]
  5. AMBIEN [Concomitant]
  6. PEG-INTRON [Suspect]
     Indication: PRODUCT USED FOR UNKNOWN INDICATION
  7. VICTRELIS [Suspect]
     Indication: PRODUCT USED FOR UNKNOWN INDICATION
     Dosage: 200 MG;Q8H;PO
     Route: 048
     Dates: start: 20110801
  8. XANAX [Concomitant]
  9. VITAMIN D [Concomitant]

REACTIONS (6)
  - WHITE BLOOD CELL COUNT DECREASED [None]
  - VISION BLURRED [None]
  - RED BLOOD CELL COUNT DECREASED [None]
  - RASH PRURITIC [None]
  - RASH GENERALISED [None]
  - DEPRESSION [None]
